FAERS Safety Report 16066843 (Version 1)
Quarter: 2019Q2

REPORT INFORMATION
  Report Type: Spontaneous
  Country: US (occurrence: US)
  Receive Date: 20190313
  Receipt Date: 20190313
  Transmission Date: 20190711
  Serious: Yes (Hospitalization)
  Sender: FDA-Public Use
  Company Number: None

PATIENT
  Age: 58 Year
  Sex: Female
  Weight: 75.5 kg

DRUGS (9)
  1. MIDODRINE [Concomitant]
     Active Substance: MIDODRINE
  2. ACETAMINOPHEN. [Concomitant]
     Active Substance: ACETAMINOPHEN
  3. ACYCLOVIR. [Concomitant]
     Active Substance: ACYCLOVIR
  4. FLUCONAZOLE. [Concomitant]
     Active Substance: FLUCONAZOLE
  5. ONDANSETRON [Concomitant]
     Active Substance: ONDANSETRON
  6. YESCARTA [Suspect]
     Active Substance: AXICABTAGENE CILOLEUCEL
     Indication: DIFFUSE LARGE B-CELL LYMPHOMA
     Dates: start: 20181002, end: 20181002
  7. CEFEPIME [Concomitant]
     Active Substance: CEFEPIME HYDROCHLORIDE
  8. BENDAMUSTINE [Concomitant]
     Active Substance: BENDAMUSTINE
  9. SULFAMETHOXAZOLE-TRIMETHOPRIM DS [Concomitant]
     Active Substance: SULFAMETHOXAZOLE\TRIMETHOPRIM

REACTIONS (10)
  - Abdominal pain [None]
  - Dysphagia [None]
  - Orthostatic hypotension [None]
  - Chills [None]
  - Nausea [None]
  - Therapy non-responder [None]
  - Hyperhidrosis [None]
  - Vomiting [None]
  - Pyrexia [None]
  - Lymphadenopathy [None]

NARRATIVE: CASE EVENT DATE: 20181003
